FAERS Safety Report 8496657-9 (Version None)
Quarter: 2012Q3

REPORT INFORMATION
  Report Type: 
  Country: None (occurrence: None)
  Receive Date: 20120709
  Receipt Date: 20120629
  Transmission Date: 20120928
  Serious: Yes (Other)
  Sender: FDA-Public Use
  Company Number: US-ABBOTT-12P-163-0953248-00

PATIENT
  Sex: Male
  Weight: 49.94 kg

DRUGS (4)
  1. SULFASALAZINE [Concomitant]
     Indication: CROHN'S DISEASE
  2. CLONAZEPAM [Concomitant]
     Indication: CONVULSION
  3. HUMIRA [Suspect]
     Indication: CROHN'S DISEASE
     Dates: start: 20090101
  4. OMEPRAZOLE [Concomitant]
     Indication: GASTROINTESTINAL ULCER

REACTIONS (5)
  - PYREXIA [None]
  - VOMITING [None]
  - DIARRHOEA [None]
  - HYPOPHAGIA [None]
  - WHITE BLOOD CELL COUNT DECREASED [None]
